FAERS Safety Report 8218492-9 (Version None)
Quarter: 2012Q1

REPORT INFORMATION
  Report Type: 
  Country: None (occurrence: None)
  Receive Date: 20120319
  Receipt Date: 20120315
  Transmission Date: 20120608
  Serious: Yes (Hospitalization)
  Sender: FDA-Public Use
  Company Number: US-PFIZER INC-2012069062

PATIENT
  Sex: Female

DRUGS (3)
  1. TIKOSYN [Suspect]
     Dosage: 250 UG, UNK
     Dates: start: 20120111
  2. TIKOSYN [Suspect]
     Dosage: 500 UG, UNK
  3. COUMADIN [Concomitant]
     Indication: COAGULOPATHY
     Dosage: UNK

REACTIONS (6)
  - SOMNOLENCE [None]
  - FATIGUE [None]
  - DRUG INEFFECTIVE [None]
  - BRADYCARDIA [None]
  - ATRIAL FIBRILLATION [None]
  - DEPRESSED MOOD [None]
